FAERS Safety Report 6159651-9 (Version None)
Quarter: 2009Q2

REPORT INFORMATION
  Report Type: 
  Country: None (occurrence: None)
  Receive Date: 20090415
  Receipt Date: 20090403
  Transmission Date: 20091009
  Serious: Yes (Other)
  Sender: FDA-Public Use
  Company Number: ACO_00525_2009

PATIENT
  Age: 55 Year
  Sex: Female

DRUGS (1)
  1. SIRDALUD / 00740702/ (SIRDALUD - TIZANIDINE HYDROCHLORIDE) (NOT SPECIF [Suspect]
     Indication: NECK PAIN
     Dosage: (2 MG, FREQUENCY UNKNOWN ORAL)
     Route: 048
     Dates: start: 20080608, end: 20080613

REACTIONS (3)
  - HAEMOLYTIC ANAEMIA [None]
  - HALLUCINATION [None]
  - MALAISE [None]
